FAERS Safety Report 4706911-1 (Version None)
Quarter: 2005Q2

REPORT INFORMATION
  Report Type: 
  Country: None (occurrence: None)
  Receive Date: 20050630
  Receipt Date: 20050620
  Transmission Date: 20051028
  Serious: Yes (Hospitalization)
  Sender: FDA-Public Use
  Company Number: MK200506-0282-1

PATIENT
  Age: 55 Year
  Sex: Male

DRUGS (7)
  1. TRAMADOL HYDROCHLORIDE TABS 50 MG [Suspect]
     Indication: PAIN
     Dosage: 50-100 MG, BID TO TID
  2. ENALAPRIL MALEATE [Concomitant]
  3. SOTALOL HCL [Concomitant]
  4. BENDROFLUMETHIAZIDE [Concomitant]
  5. POTASSIUM CHLORIDE [Concomitant]
  6. TERBUTALINE SULFATE [Concomitant]
  7. BUDESONIDE [Concomitant]

REACTIONS (4)
  - ANXIETY [None]
  - HYPERHIDROSIS [None]
  - OEDEMA MOUTH [None]
  - SWOLLEN TONGUE [None]
